FAERS Safety Report 10957735 (Version 4)
Quarter: 2016Q3

REPORT INFORMATION
  Report Type: Report from Study
  Country: PL (occurrence: PL)
  Receive Date: 20150326
  Receipt Date: 20160916
  Transmission Date: 20161109
  Serious: Yes (Death, Life-Threatening, Hospitalization)
  Sender: FDA-Public Use
  Company Number: PL-AMGEN-POLCT2015028674

PATIENT
  Age: 22 Year
  Sex: Male
  Weight: 71 kg

DRUGS (37)
  1. DEXAMETHASONE. [Concomitant]
     Active Substance: DEXAMETHASONE
     Dosage: 4-20 MG, UNK
     Route: 042
     Dates: start: 20150227, end: 20150320
  2. ABELCET [Concomitant]
     Active Substance: AMPHOTERICIN B\DIMYRISTOYLPHOSPHATIDYLCHOLINE, DL-\DIMYRISTOYLPHOSPHATIDYLGLYCEROL, DL-
     Dosage: 300 MG, UNK
     Route: 042
     Dates: start: 20150213, end: 20150302
  3. FRESH FROZEN PLASMA [Concomitant]
     Active Substance: HUMAN PLASMA
     Dosage: 3 UNK, UNK
     Route: 042
     Dates: start: 20150321, end: 20150321
  4. METAMIZOLE [Concomitant]
     Active Substance: METAMIZOLE
     Dosage: 2 ML, UNK
     Route: 042
     Dates: start: 20150306, end: 20150307
  5. METHOTREXATE. [Concomitant]
     Active Substance: METHOTREXATE
     Dosage: 15 MG, UNK
     Route: 037
     Dates: start: 20150227, end: 20150227
  6. CYTOSINE ARABINOSIDE [Concomitant]
     Active Substance: CYTARABINE
     Dosage: 40 MG, UNK
     Route: 037
     Dates: start: 20150227, end: 20150227
  7. MAGNESIUM SULPHATE [Concomitant]
     Active Substance: MAGNESIUM SULFATE
     Dosage: 1 UNK, UNK
     Route: 042
     Dates: start: 20150310, end: 20150321
  8. MERONEM [Concomitant]
     Active Substance: MEROPENEM
     Dosage: 1 G, UNK
     Route: 042
     Dates: start: 20150310, end: 20150321
  9. PLATELETS [Concomitant]
     Active Substance: HUMAN PLATELET, ALLOGENIC
     Dosage: 1 TO 3 UNK, UNK
     Route: 042
     Dates: start: 20150227, end: 20150321
  10. ENARENAL [Concomitant]
     Active Substance: ENALAPRIL
     Dosage: 5 MG, UNK
     Route: 048
     Dates: start: 20150128, end: 20150319
  11. CAPHOSOL [Concomitant]
     Active Substance: CALCIUM CHLORIDE\SODIUM CHLORIDE\SODIUM PHOSPHATE, DIBASIC, ANHYDROUS\SODIUM PHOSPHATE, MONOBASIC, ANHYDROUS
     Dosage: 1 UNK, UNK
     Route: 061
     Dates: start: 20150123, end: 20150319
  12. VITACON [Concomitant]
     Dosage: 1 UNK, UNK
     Route: 042
     Dates: start: 20150320, end: 20150322
  13. CLEMASTINUM [Concomitant]
     Active Substance: CLEMASTINE FUMARATE
     Dosage: 1 UNK TO 2 MG, UNK
     Route: 042
     Dates: start: 20150213, end: 20150319
  14. SALINE [Concomitant]
     Active Substance: SODIUM CHLORIDE
     Dosage: 1000 ML, UNK
     Route: 042
     Dates: start: 20150223, end: 20150322
  15. BLINATUMOMAB [Suspect]
     Active Substance: BLINATUMOMAB
     Indication: ACUTE LYMPHOCYTIC LEUKAEMIA
     Dosage: 28 MCG, UNK
     Route: 041
     Dates: start: 20150310, end: 20150320
  16. VANCOCIN [Concomitant]
     Active Substance: VANCOMYCIN HYDROCHLORIDE
     Dosage: 1 G, UNK
     Route: 042
     Dates: start: 20150315, end: 20150321
  17. NOXAFIL [Concomitant]
     Active Substance: POSACONAZOLE
     Dosage: 5 TO 10 ML, UNK
     Route: 048
     Dates: start: 20150314
  18. KALII CHLORIDUM [Concomitant]
     Dosage: 1.5 TO 6 G, UNK
     Route: 042
     Dates: start: 20150214, end: 20150315
  19. METAMIZOL [Concomitant]
     Active Substance: METAMIZOLE SODIUM
     Dosage: 2 TO 3 ML, UNK
     Route: 042
     Dates: start: 20150315, end: 20150321
  20. METOCLOPRAMIDUM [Concomitant]
     Dosage: 10 MG, UNK
     Route: 042
     Dates: start: 20150318, end: 20150318
  21. RED BLOOD CELLS [Concomitant]
     Active Substance: HUMAN RED BLOOD CELL
     Dosage: 1 UNK, UNK
     Route: 042
     Dates: start: 20150311, end: 20150321
  22. SPIRONOLACTONE. [Concomitant]
     Active Substance: SPIRONOLACTONE
     Dosage: 200 MG, UNK
     Route: 042
     Dates: start: 20150223, end: 20150302
  23. HARTMANN^S SOLUTION [Concomitant]
     Active Substance: CALCIUM CHLORIDE\POTASSIUM CHLORIDE\SODIUM CHLORIDE\SODIUM LACTATE
     Dosage: 500 ML, UNK
     Route: 042
     Dates: start: 20150223, end: 20150302
  24. ACETAMINOPHEN. [Concomitant]
     Active Substance: ACETAMINOPHEN
     Dosage: 1 G, UNK
     Route: 042
     Dates: start: 20150313, end: 20150321
  25. HYDROCORTISONE. [Concomitant]
     Active Substance: HYDROCORTISONE
     Dosage: 100 MG, UNK
     Route: 042
     Dates: start: 20150319, end: 20150319
  26. LACTULOSUM [Concomitant]
     Dosage: 15 ML, UNK
     Route: 048
     Dates: start: 20150320, end: 20150320
  27. CAPTOPRILUM [Concomitant]
     Dosage: 12.5 MG, UNK
     Route: 060
     Dates: start: 20150321, end: 20150321
  28. METOPROLOL TARTRATE. [Concomitant]
     Active Substance: METOPROLOL TARTRATE
     Dosage: 25-50 MG, UNK
     Route: 048
     Dates: start: 20150118, end: 20150322
  29. KRIOPRECIPITAT [Concomitant]
     Dosage: 7 UNK, UNK
     Route: 042
     Dates: start: 20150311, end: 20150320
  30. MILURIT [Concomitant]
     Active Substance: ALLOPURINOL
     Dosage: 300 MG, UNK
     Route: 048
     Dates: start: 20150209, end: 20150319
  31. ACETYLCYSTEIN [Concomitant]
     Active Substance: ACETYLCYSTEINE
     Dosage: 1 UNK, UNK
     Route: 061
     Dates: start: 20150210, end: 20150320
  32. HEPA-MERZ [Concomitant]
     Dosage: 1 UNK, UNK
     Route: 042
     Dates: start: 20150224, end: 20150318
  33. URSOPOL [Concomitant]
     Dosage: 1 UNK, UNK
     Route: 048
     Dates: start: 20150306, end: 20150321
  34. ZOFRAN [Concomitant]
     Active Substance: ONDANSETRON HYDROCHLORIDE
     Dosage: 1 UNK, UNK
     Route: 042
     Dates: start: 20150210, end: 20150318
  35. SANDOGLOBULIN [Concomitant]
     Active Substance: HUMAN IMMUNOGLOBULIN G
     Dosage: 6 G, UNK
     Route: 042
     Dates: start: 20150319, end: 20150320
  36. FORTUM [Concomitant]
     Active Substance: CEFTAZIDIME
     Dosage: 2 G, UNK
     Route: 042
     Dates: start: 20150227, end: 20150306
  37. FUROSEMIDUM [Concomitant]
     Active Substance: FUROSEMIDE
     Dosage: 10 MG, UNK
     Route: 048
     Dates: start: 20150223, end: 20150309

REACTIONS (1)
  - Acute respiratory failure [Fatal]

NARRATIVE: CASE EVENT DATE: 20150322
